FAERS Safety Report 15705221 (Version 1)
Quarter: 2018Q4

REPORT INFORMATION
  Report Type: Spontaneous
  Country: GB (occurrence: GB)
  Receive Date: 20181210
  Receipt Date: 20181210
  Transmission Date: 20190205
  Serious: Yes (Other)
  Sender: FDA-Public Use
  Company Number: GB-BAYER-2018-224952

PATIENT
  Age: 59 Year

DRUGS (4)
  1. XARELTO [Suspect]
     Active Substance: RIVAROXABAN
     Indication: ATRIAL FIBRILLATION
  2. ACETYLSALICYLIC ACID [Concomitant]
     Active Substance: ASPIRIN
     Dosage: UNK
  3. ASPIRIN. [Suspect]
     Active Substance: ASPIRIN
     Dosage: UNK
  4. TINZAPARIN [Suspect]
     Active Substance: TINZAPARIN
     Dosage: UNK

REACTIONS (4)
  - Contraindicated product administered [Unknown]
  - Oesophageal candidiasis [Unknown]
  - Melaena [Unknown]
  - Gastritis erosive [Unknown]
